FAERS Safety Report 9055949 (Version 1)
Quarter: 2013Q1

REPORT INFORMATION
  Report Type: Spontaneous
  Country: US (occurrence: US)
  Receive Date: 20130206
  Receipt Date: 20130206
  Transmission Date: 20140127
  Serious: No
  Sender: FDA-Public Use
  Company Number: US-ALLERGAN-0800828US

PATIENT
  Sex: Female

DRUGS (6)
  1. RESTASIS? [Suspect]
     Indication: DRY EYE
     Dosage: 2 GTT, BID
     Route: 047
     Dates: start: 2009
  2. RESTASIS? [Suspect]
     Dosage: UNK, UNKNOWN
     Route: 047
     Dates: start: 2008
  3. XANAX [Concomitant]
     Indication: ANXIETY
     Dosage: UNK
     Route: 048
  4. PREMARIN [Concomitant]
     Indication: MENOPAUSE
     Dosage: UNK
  5. VENTOLIN [Concomitant]
     Indication: SARCOIDOSIS
     Dosage: 4 PUFFS Q6HR
     Route: 055
  6. PAXIL [Concomitant]
     Indication: INSOMNIA
     Dosage: UNK

REACTIONS (7)
  - Dyspnoea [Not Recovered/Not Resolved]
  - Chest pain [Not Recovered/Not Resolved]
  - Dizziness [Not Recovered/Not Resolved]
  - Dizziness [Not Recovered/Not Resolved]
  - Nausea [Unknown]
  - Eye irritation [Not Recovered/Not Resolved]
  - Vision blurred [Not Recovered/Not Resolved]
